FAERS Safety Report 15674627 (Version 1)
Quarter: 2018Q4

REPORT INFORMATION
  Report Type: Report from Study
  Country: IT (occurrence: IT)
  Receive Date: 20181130
  Receipt Date: 20181130
  Transmission Date: 20190205
  Serious: Yes (Other)
  Sender: FDA-Public Use
  Company Number: IT-TEVA-2018-IT-980505

PATIENT
  Age: 23 Year
  Sex: Female

DRUGS (5)
  1. DELORAZEPAM [Suspect]
     Active Substance: DELORAZEPAM
     Indication: INTENTIONAL SELF-INJURY
     Route: 048
     Dates: start: 20181015, end: 20181015
  2. TAVOR (LORAZEPAM) [Suspect]
     Active Substance: LORAZEPAM
     Indication: INTENTIONAL SELF-INJURY
     Route: 048
     Dates: start: 20181015, end: 20181015
  3. ESCITALOPRAM OXALATE. [Suspect]
     Active Substance: ESCITALOPRAM OXALATE
     Indication: INTENTIONAL SELF-INJURY
     Route: 048
     Dates: start: 20181015, end: 20181015
  4. OKI 80 MG GRANULATO PER SOLUZIONE ORALE [Suspect]
     Active Substance: KETOPROFEN LYSINE
     Indication: INTENTIONAL SELF-INJURY
     Route: 048
     Dates: start: 20181015, end: 20181015
  5. LAMOTRIGINE. [Suspect]
     Active Substance: LAMOTRIGINE
     Indication: INTENTIONAL SELF-INJURY
     Route: 048
     Dates: start: 20181015, end: 20181015

REACTIONS (3)
  - Drug abuse [Recovering/Resolving]
  - Intentional self-injury [Recovering/Resolving]
  - Sopor [Recovering/Resolving]

NARRATIVE: CASE EVENT DATE: 20181015
